FAERS Safety Report 19064263 (Version 2)
Quarter: 2021Q2

REPORT INFORMATION
  Report Type: Spontaneous
  Country: PL (occurrence: PL)
  Receive Date: 20210326
  Receipt Date: 20210407
  Transmission Date: 20210717
  Serious: No
  Sender: FDA-Public Use
  Company Number: PL-009507513-2103POL005284

PATIENT
  Age: 31 Year
  Sex: Female

DRUGS (6)
  1. TEMOZOLOMIDE. [Suspect]
     Active Substance: TEMOZOLOMIDE
     Indication: NEUROENDOCRINE TUMOUR
     Dosage: ONE COURSE OF TREATMENT
     Route: 048
     Dates: start: 2019, end: 2019
  2. PROPRANOLOL [Concomitant]
     Active Substance: PROPRANOLOL HYDROCHLORIDE
     Dosage: 20 MILLIGRAM, QD
     Dates: start: 2019
  3. LEVOTHYROXINE SODIUM. [Concomitant]
     Active Substance: LEVOTHYROXINE SODIUM
     Dosage: 75 MICROGRAM, QD
     Dates: start: 201807
  4. OXYCODONE [Concomitant]
     Active Substance: OXYCODONE
     Dosage: UP TO 20 MG/DAY
     Dates: start: 2019
  5. CAPECITABINE. [Suspect]
     Active Substance: CAPECITABINE
     Indication: NEUROENDOCRINE TUMOUR
     Dosage: ONE COURSE OF TREATMENT
     Dates: start: 2019, end: 2019
  6. DROTAVERINE [Concomitant]
     Active Substance: DROTAVERINE
     Dosage: 40 MILLIGRAM, QD
     Dates: start: 2019

REACTIONS (2)
  - Off label use [Unknown]
  - Drug tolerance decreased [Unknown]

NARRATIVE: CASE EVENT DATE: 2019
